FAERS Safety Report 5276614-6 (Version None)
Quarter: 2007Q1

REPORT INFORMATION
  Report Type: 
  Country: None (occurrence: None)
  Receive Date: 20070327
  Receipt Date: 20070319
  Transmission Date: 20070707
  Serious: Yes (Death)
  Sender: FDA-Public Use
  Company Number: US-JNJFOC-20060804940

PATIENT
  Age: 62 Year
  Sex: Male

DRUGS (25)
  1. REMICADE [Suspect]
     Route: 042
  2. REMICADE [Suspect]
     Dosage: DOSE = 3 VIALS
     Route: 042
  3. REMICADE [Suspect]
     Dosage: DOSE = 3 VIALS
     Route: 042
  4. REMICADE [Suspect]
     Dosage: DOSE = 3 VIALS
     Route: 042
  5. REMICADE [Suspect]
     Dosage: DOSE = 3 VIALS
     Route: 042
  6. REMICADE [Suspect]
     Route: 042
  7. REMICADE [Suspect]
     Indication: RHEUMATOID ARTHRITIS
     Route: 042
  8. AMBIEN [Concomitant]
     Route: 048
  9. AMBIEN [Concomitant]
     Indication: SLEEP DISORDER
     Route: 048
  10. LOTENSIN [Concomitant]
     Route: 048
  11. METHOTREXATE [Concomitant]
     Route: 048
  12. METHOTREXATE [Concomitant]
     Route: 048
  13. METHOTREXATE [Concomitant]
     Indication: RHEUMATOID ARTHRITIS
     Route: 048
  14. FOLIC ACID [Concomitant]
     Route: 048
  15. DIOVAN [Concomitant]
     Route: 048
  16. DIOVAN [Concomitant]
     Route: 048
  17. PREDNISONE [Concomitant]
  18. PREDNISONE [Concomitant]
  19. LOPRESSOR [Concomitant]
  20. CASODEX [Concomitant]
  21. PROTONIX [Concomitant]
  22. HYDROCHLOROTHIAZIDE [Concomitant]
  23. ANZEMET [Concomitant]
  24. ASPIRIN [Concomitant]
  25. ATIVAN [Concomitant]

REACTIONS (5)
  - HEPATIC CANCER METASTATIC [None]
  - HEPATIC FAILURE [None]
  - METABOLIC ACIDOSIS [None]
  - PROSTATE CANCER [None]
  - RENAL FAILURE [None]
